FAERS Safety Report 5164281-1 (Version None)
Quarter: 2006Q4

REPORT INFORMATION
  Report Type: 
  Country: None (occurrence: None)
  Receive Date: 20061128
  Receipt Date: 20061128
  Transmission Date: 20070319
  Serious: Yes (Hospitalization)
  Sender: FDA-Public Use
  Company Number: None

PATIENT
  Age: 64 Year
  Sex: Male

DRUGS (1)
  1. BENAZEPRIL HCL [Suspect]
     Dosage: 20 MG DAILY PO
     Route: 048

REACTIONS (1)
  - ANGIONEUROTIC OEDEMA [None]
